FAERS Safety Report 21556769 (Version 1)
Quarter: 2022Q4

REPORT INFORMATION
  Report Type: Spontaneous
  Country: US (occurrence: None)
  Receive Date: 20221104
  Receipt Date: 20221104
  Transmission Date: 20230113
  Serious: Yes (Other)
  Sender: FDA-Public Use
  Company Number: None

PATIENT
  Age: 66 Year
  Sex: Female
  Weight: 92.25 kg

DRUGS (1)
  1. BELSOMRA [Suspect]
     Active Substance: SUVOREXANT
     Indication: Insomnia
     Dosage: OTHER QUANTITY : 1 TABLET(S);?FREQUENCY : AT BEDTIME;?
     Route: 048
     Dates: start: 20221030, end: 20221031

REACTIONS (7)
  - Influenza like illness [None]
  - Nausea [None]
  - Feeling abnormal [None]
  - Insomnia [None]
  - Depression [None]
  - Anxiety [None]
  - Paradoxical drug reaction [None]

NARRATIVE: CASE EVENT DATE: 20221030
